FAERS Safety Report 12455283 (Version 2)
Quarter: 2016Q2

REPORT INFORMATION
  Report Type: Report from Study
  Country: None (occurrence: BE)
  Receive Date: 20160610
  Receipt Date: 20160630
  Transmission Date: 20160815
  Serious: Yes (Hospitalization)
  Sender: FDA-Public Use
  Company Number: BE-BIOVITRUM-2016BE0410

PATIENT
  Age: 51 Year
  Sex: Male
  Weight: 54 kg

DRUGS (5)
  1. CALCIUMCITRATE D3 [Concomitant]
  2. SELOKEN [Concomitant]
     Active Substance: METOPROLOL
  3. KINERET [Suspect]
     Active Substance: ANAKINRA
     Indication: AUTOINFLAMMATORY DISEASE
     Dates: start: 20160411
  4. PANTOPRAZOLE [Concomitant]
     Active Substance: PANTOPRAZOLE SODIUM
  5. METHYLPREDNISOLONE. [Concomitant]
     Active Substance: METHYLPREDNISOLONE
     Route: 048

REACTIONS (2)
  - Pyoderma gangrenosum [Recovered/Resolved with Sequelae]
  - Skin infection [Recovered/Resolved with Sequelae]

NARRATIVE: CASE EVENT DATE: 20160530
